FAERS Safety Report 15491885 (Version 1)
Quarter: 2018Q4

REPORT INFORMATION
  Report Type: Spontaneous
  Country: ES (occurrence: ES)
  Receive Date: 20181012
  Receipt Date: 20181012
  Transmission Date: 20190205
  Serious: Yes (Life-Threatening, Other)
  Sender: FDA-Public Use
  Company Number: ES-AUROBINDO-AUR-APL-2018-049768

PATIENT
  Age: 96 Year
  Sex: Female

DRUGS (2)
  1. CARBAMAZEPINE. [Interacting]
     Active Substance: CARBAMAZEPINE
     Indication: TRIGEMINAL NEURALGIA
     Dosage: 200 MILLIGRAM, DAILY
     Route: 048
     Dates: start: 20180724, end: 20180823
  2. LOSARTAN / HYDROCHLOROTHIAZIDE [Suspect]
     Active Substance: HYDROCHLOROTHIAZIDE\LOSARTAN
     Indication: HYPERTENSION
     Dosage: 1 DOSAGE FORM, DAILY
     Route: 048
     Dates: start: 2017, end: 20180823

REACTIONS (1)
  - Inappropriate antidiuretic hormone secretion [Recovered/Resolved]

NARRATIVE: CASE EVENT DATE: 20180814
